FAERS Safety Report 7619505-5 (Version None)
Quarter: 2011Q3

REPORT INFORMATION
  Report Type: 
  Country: None (occurrence: None)
  Receive Date: 20110719
  Receipt Date: 20110621
  Transmission Date: 20111222
  Serious: Yes (Other)
  Sender: FDA-Public Use
  Company Number: DE-UCBSA-035871

PATIENT
  Sex: Female
  Weight: 70 kg

DRUGS (3)
  1. KEPPRA [Suspect]
     Indication: EPILEPSY
     Route: 048
     Dates: start: 20110317, end: 20110326
  2. KONAKION [Concomitant]
     Dates: end: 20110323
  3. MARCUMAR [Concomitant]

REACTIONS (1)
  - PROTHROMBIN TIME PROLONGED [None]
